FAERS Safety Report 17233667 (Version 2)
Quarter: 2020Q1

REPORT INFORMATION
  Report Type: Other
  Country: DE (occurrence: DE)
  Receive Date: 20200105
  Receipt Date: 20200113
  Transmission Date: 20200409
  Serious: Yes (Other)
  Sender: FDA-Public Use
  Company Number: DE-CELLTRION INC.-2019DE027590

PATIENT

DRUGS (2)
  1. INFLIXIMAB (UNKNOWN) [Suspect]
     Active Substance: INFLIXIMAB
     Dosage: 300 MG
     Route: 042
     Dates: start: 20190724
  2. INFLIXIMAB (UNKNOWN) [Suspect]
     Active Substance: INFLIXIMAB
     Indication: PRODUCT USED FOR UNKNOWN INDICATION
     Dosage: 300 MG
     Route: 042
     Dates: start: 20190724

REACTIONS (9)
  - Flushing [Recovering/Resolving]
  - Hypomenorrhoea [Recovering/Resolving]
  - Arthralgia [Unknown]
  - Vulvovaginal pruritus [Recovering/Resolving]
  - Seizure [Recovering/Resolving]
  - Menstrual disorder [Recovering/Resolving]
  - Hyperhidrosis [Recovering/Resolving]
  - Vulvovaginal dryness [Recovering/Resolving]
  - Alopecia [Recovering/Resolving]

NARRATIVE: CASE EVENT DATE: 20190724
